FAERS Safety Report 5014766-3 (Version None)
Quarter: 2006Q2

REPORT INFORMATION
  Report Type: 
  Country: None (occurrence: None)
  Receive Date: 20060531
  Receipt Date: 20060316
  Transmission Date: 20061013
  Serious: Yes (Other)
  Sender: FDA-Public Use
  Company Number: PHEH2006US03590

PATIENT
  Age: 47 Year
  Sex: Female

DRUGS (6)
  1. GLEEVEC [Suspect]
     Indication: CHRONIC MYELOID LEUKAEMIA
     Dosage: 300 MG, QD
  2. GLEEVEC [Suspect]
     Dosage: 300 MG, QD
     Route: 048
     Dates: start: 20050601, end: 20051221
  3. TRAZODONE HCL [Concomitant]
  4. ALLOPURINOL [Concomitant]
  5. PREVACID [Concomitant]
     Dosage: 60MG, UNK
  6. ZANTAC [Concomitant]
     Dosage: 300MG, UNK

REACTIONS (13)
  - ARTHRALGIA [None]
  - BONE PAIN [None]
  - ERYTHEMA NODOSUM [None]
  - FIBROMYALGIA [None]
  - FIBROSIS [None]
  - LYMPHOCYTIC INFILTRATION [None]
  - MUSCLE SPASMS [None]
  - NAUSEA [None]
  - NODULE ON EXTREMITY [None]
  - PANNICULITIS [None]
  - RHEUMATOID ARTHRITIS [None]
  - SKIN LESION [None]
  - TENDERNESS [None]
